FAERS Safety Report 15012923 (Version 1)
Quarter: 2018Q2

REPORT INFORMATION
  Report Type: Spontaneous
  Country: US (occurrence: US)
  Receive Date: 20180614
  Receipt Date: 20180614
  Transmission Date: 20180711
  Serious: Yes (Other)
  Sender: FDA-Public Use
  Company Number: US-TEVA-2018-US-905555

PATIENT
  Age: 70 Year
  Sex: Female

DRUGS (4)
  1. PAROXETINE. [Suspect]
     Active Substance: PAROXETINE
     Dosage: HIGH DOSE
     Route: 065
  2. LAMOTRIGINE. [Suspect]
     Active Substance: LAMOTRIGINE
     Dosage: HIGH DOSE
     Route: 065
  3. BUPROPION. [Suspect]
     Active Substance: BUPROPION
     Dosage: HIGH DOSE
     Route: 065
  4. QUETIAPINE. [Suspect]
     Active Substance: QUETIAPINE
     Dosage: HIGH DOSE
     Route: 065

REACTIONS (6)
  - Cognitive disorder [Recovered/Resolved]
  - Gait disturbance [Recovered/Resolved]
  - Hallucinations, mixed [Recovered/Resolved]
  - Resting tremor [Recovered/Resolved]
  - Disinhibition [Recovered/Resolved]
  - Fall [Recovered/Resolved]
